FAERS Safety Report 20663696 (Version 3)
Quarter: 2022Q2

REPORT INFORMATION
  Report Type: Spontaneous
  Country: JP (occurrence: JP)
  Receive Date: 20220401
  Receipt Date: 20220606
  Transmission Date: 20220721
  Serious: Yes (Other)
  Sender: FDA-Public Use
  Company Number: JP-AMERICAN REGENT INC-2022000849

PATIENT
  Age: 34 Year
  Sex: Female

DRUGS (1)
  1. FERINJECT [Suspect]
     Active Substance: FERRIC CARBOXYMALTOSE
     Indication: Iron deficiency anaemia
     Dosage: 500 MG DILUTED IN 100 ML OF 0.9% NACL
     Dates: start: 20211119, end: 20211119

REACTIONS (5)
  - Maternal exposure during pregnancy [Recovered/Resolved]
  - Infusion site extravasation [Unknown]
  - Infusion site discolouration [Recovering/Resolving]
  - Infusion site hypoaesthesia [Unknown]
  - Infusion site pain [Unknown]

NARRATIVE: CASE EVENT DATE: 20211119
